FAERS Safety Report 6369862-5 (Version None)
Quarter: 2009Q3

REPORT INFORMATION
  Report Type: 
  Country: None (occurrence: None)
  Receive Date: 20090923
  Receipt Date: 20071120
  Transmission Date: 20100115
  Serious: Yes (Hospitalization)
  Sender: FDA-Public Use
  Company Number: US-ASTRAZENECA-2006UW11681

PATIENT
  Age: 20497 Day
  Sex: Male
  Weight: 95.3 kg

DRUGS (10)
  1. SEROQUEL [Suspect]
     Indication: DEPRESSION
     Dosage: 20 MG TO 100 MG
     Route: 048
     Dates: start: 20011017, end: 20060101
  2. SEROQUEL [Suspect]
     Indication: BIPOLAR DISORDER
     Dosage: 20 MG TO 100 MG
     Route: 048
     Dates: start: 20011017, end: 20060101
  3. SEROQUEL [Suspect]
     Route: 048
     Dates: start: 20011017
  4. SEROQUEL [Suspect]
     Route: 048
     Dates: start: 20011017
  5. ZYPREXA [Suspect]
     Route: 048
     Dates: start: 19990213
  6. GLUCOTROL XL [Concomitant]
     Indication: DIABETES MELLITUS
     Route: 048
     Dates: start: 20040513
  7. GLUCOPHAGE [Concomitant]
     Indication: TYPE 2 DIABETES MELLITUS
     Route: 048
     Dates: start: 20040513
  8. ASPIRIN [Concomitant]
     Route: 048
     Dates: start: 20040513
  9. WELLBUTRIN SR [Concomitant]
     Dates: start: 20011017
  10. CELEXA [Concomitant]

REACTIONS (1)
  - DIABETES MELLITUS [None]
